FAERS Safety Report 7764837-3 (Version None)
Quarter: 2011Q3

REPORT INFORMATION
  Report Type: 
  Country: None (occurrence: None)
  Receive Date: 20110921
  Receipt Date: 20110914
  Transmission Date: 20111222
  Serious: Yes (Hospitalization, Other)
  Sender: FDA-Public Use
  Company Number: JP-PFIZER INC-2011180275

PATIENT
  Age: 29 Year
  Sex: Male
  Weight: 82.5 kg

DRUGS (5)
  1. CHLOR-TRIMETON [Concomitant]
     Indication: PROPHYLAXIS
     Dosage: 10 MG, 1X/DAY
     Route: 042
     Dates: start: 20110630, end: 20110706
  2. CANDESARTAN CILEXETIL [Concomitant]
     Indication: PROPHYLAXIS
     Dosage: 8 MG, 1X/DAY
     Route: 048
  3. URSO 250 [Concomitant]
     Indication: PROPHYLAXIS
     Dosage: 50 MG, 3X/DAY
     Route: 048
  4. LEVOTHYROXINE SODIUM [Concomitant]
     Indication: THYROID DISORDER
     Dosage: 100 UG, 1X/DAY
     Route: 048
  5. TEMSIROLIMUS [Suspect]
     Indication: RENAL CELL CARCINOMA
     Dosage: 25 MG, WEEKLY
     Route: 041
     Dates: start: 20110630, end: 20110706

REACTIONS (6)
  - BLOOD LACTATE DEHYDROGENASE INCREASED [None]
  - HEPATIC FUNCTION ABNORMAL [None]
  - ASPARTATE AMINOTRANSFERASE INCREASED [None]
  - BLOOD ALKALINE PHOSPHATASE INCREASED [None]
  - GAMMA-GLUTAMYLTRANSFERASE INCREASED [None]
  - ALANINE AMINOTRANSFERASE INCREASED [None]
